FAERS Safety Report 15879792 (Version 1)
Quarter: 2019Q1

REPORT INFORMATION
  Report Type: Spontaneous
  Country: US (occurrence: US)
  Receive Date: 20190127
  Receipt Date: 20190127
  Transmission Date: 20190417
  Serious: Yes (Hospitalization)
  Sender: FDA-Public Use
  Company Number: None

PATIENT
  Age: 72 Year
  Sex: Female

DRUGS (1)
  1. SAIZEN [Suspect]
     Active Substance: SOMATROPIN

REACTIONS (4)
  - Sinusitis [None]
  - Fatigue [None]
  - Bronchitis [None]
  - Dizziness [None]

NARRATIVE: CASE EVENT DATE: 20190125
